FAERS Safety Report 5279822-3 (Version None)
Quarter: 2007Q1

REPORT INFORMATION
  Report Type: 
  Country: None (occurrence: None)
  Receive Date: 20061212
  Receipt Date: 20051017
  Transmission Date: 20070707
  Serious: Yes (Other)
  Sender: FDA-Public Use
  Company Number: 2005UW15613

PATIENT
  Age: 36 Year
  Sex: Female

DRUGS (1)
  1. RHINOCORT AQUA [Suspect]
     Dosage: 1 SPRAY DAILY IN
     Route: 055
     Dates: start: 20051017

REACTIONS (4)
  - ACCIDENTAL OVERDOSE [None]
  - HEADACHE [None]
  - MEDICATION ERROR [None]
  - NAUSEA [None]
